FAERS Safety Report 6900404-9 (Version None)
Quarter: 2010Q3

REPORT INFORMATION
  Report Type: 
  Country: None (occurrence: None)
  Receive Date: 20100803
  Receipt Date: 20100723
  Transmission Date: 20110219
  Serious: Yes (Life-Threatening)
  Sender: FDA-Public Use
  Company Number: PL-JNJFOC-20100707960

PATIENT
  Sex: Female

DRUGS (2)
  1. REMICADE [Suspect]
     Indication: PSORIATIC ARTHROPATHY
     Dosage: 6 INFUSIONS
     Route: 042
  2. REMICADE [Suspect]
     Route: 042

REACTIONS (5)
  - ERYTHEMA [None]
  - HYPERTENSION [None]
  - OEDEMA PERIPHERAL [None]
  - PRURITUS [None]
  - TACHYCARDIA [None]
